FAERS Safety Report 7138383-4 (Version None)
Quarter: 2010Q4

REPORT INFORMATION
  Report Type: 
  Country: None (occurrence: None)
  Receive Date: 20101118
  Receipt Date: 20101110
  Transmission Date: 20110411
  Serious: Yes (Other)
  Sender: FDA-Public Use
  Company Number: VAL_00458_2010

PATIENT
  Age: 56 Year
  Sex: Female

DRUGS (4)
  1. EQUETRO [Suspect]
     Indication: BIPOLAR DISORDER
     Dosage: (200 MG, DF ORAL)
     Route: 048
     Dates: start: 20100701, end: 20100901
  2. EFFEXOR [Suspect]
     Indication: BIPOLAR I DISORDER
     Dosage: (150 MG QD ORAL)
     Route: 048
  3. EFFEXOR XR [Concomitant]
  4. XANAX [Concomitant]

REACTIONS (1)
  - HYPERTENSION [None]
